FAERS Safety Report 9188515 (Version 1)
Quarter: 2013Q1

REPORT INFORMATION
  Report Type: Spontaneous
  Country: IT (occurrence: IT)
  Receive Date: 20130325
  Receipt Date: 20130325
  Transmission Date: 20140127
  Serious: Yes (Hospitalization)
  Sender: FDA-Public Use
  Company Number: PHHY2013IT027938

PATIENT
  Age: 83 Year
  Sex: Male

DRUGS (6)
  1. IRBESARTAN [Suspect]
     Indication: HYPERTENSION
     Dosage: 300 MG, DAILY
     Route: 048
     Dates: start: 20100101, end: 20130125
  2. LASITONE [Suspect]
     Indication: HYPERTENSION
     Dosage: 1 DF, DAILY
     Route: 048
     Dates: start: 20100101, end: 20130125
  3. RYTMONORM [Concomitant]
  4. CARDIOASPIRIN [Concomitant]
  5. CARDURA [Concomitant]
  6. SIMVASTATINA ABC [Concomitant]

REACTIONS (2)
  - Metabolic acidosis [Recovering/Resolving]
  - Hyperkalaemia [Recovering/Resolving]
